FAERS Safety Report 9468829 (Version 1)
Quarter: 2013Q3

REPORT INFORMATION
  Report Type: Spontaneous
  Country: IT (occurrence: None)
  Receive Date: 20130816
  Receipt Date: 20130816
  Transmission Date: 20140515
  Serious: Yes (Other)
  Sender: FDA-Public Use
  Company Number: 2013AP007200

PATIENT
  Age: 84 Year
  Sex: Male

DRUGS (5)
  1. AMLODIPINE BESILATE [Suspect]
     Route: 048
     Dates: start: 20120701, end: 20130630
  2. OLMESARTAN MEDOXOMIL [Suspect]
     Route: 048
     Dates: start: 20120701, end: 20130630
  3. ASCRIPTIN [Concomitant]
  4. PANTOPRAZOLE SODIUM [Concomitant]
  5. INDOMETACIN (INDOMETACIN) [Concomitant]

REACTIONS (2)
  - Hyponatraemia [None]
  - Syncope [None]
